FAERS Safety Report 14311018 (Version 1)
Quarter: 2017Q4

REPORT INFORMATION
  Report Type: Spontaneous
  Country: US (occurrence: US)
  Receive Date: 20171221
  Receipt Date: 20171221
  Transmission Date: 20180321
  Serious: Yes (Death)
  Sender: FDA-Public Use
  Company Number: US-SA-2017SA031035

PATIENT
  Age: 63 Year

DRUGS (2)
  1. ASPIRIN. [Concomitant]
     Active Substance: ASPIRIN
     Route: 065
     Dates: start: 20120123
  2. PLAVIX [Suspect]
     Active Substance: CLOPIDOGREL BISULFATE
     Route: 048
     Dates: start: 20111230, end: 20120124

REACTIONS (6)
  - Product quality issue [Unknown]
  - Emotional distress [Unknown]
  - Thrombotic thrombocytopenic purpura [Fatal]
  - Pain [Unknown]
  - Impaired quality of life [Unknown]
  - Injury [Unknown]

NARRATIVE: CASE EVENT DATE: 20120125
